FAERS Safety Report 9315312 (Version 1)
Quarter: 2013Q2

REPORT INFORMATION
  Report Type: Spontaneous
  Country: NL (occurrence: NL)
  Receive Date: 20130529
  Receipt Date: 20130529
  Transmission Date: 20140414
  Serious: Yes (Hospitalization, Other)
  Sender: FDA-Public Use
  Company Number: NL-PFIZER INC-2013144764

PATIENT
  Age: 51 Year
  Sex: Male

DRUGS (1)
  1. SALAZOPYRINE [Suspect]
     Indication: PSORIATIC ARTHROPATHY
     Dosage: 1000 MG, 2X/DAY
     Dates: start: 201302, end: 20130425

REACTIONS (2)
  - Agranulocytosis [Recovering/Resolving]
  - Candida infection [Unknown]
